FAERS Safety Report 9176931 (Version 2)
Quarter: 2016Q1

REPORT INFORMATION
  Report Type: Spontaneous
  Country: US (occurrence: US)
  Receive Date: 20130321
  Receipt Date: 20160317
  Transmission Date: 20160526
  Serious: Yes (Death, Other)
  Sender: FDA-Public Use
  Company Number: US-JNJFOC-20130311164

PATIENT

DRUGS (3)
  1. DOXORUBICIN HYDROCHLORIDE. [Suspect]
     Active Substance: DOXORUBICIN HYDROCHLORIDE
     Indication: ACUTE LYMPHOCYTIC LEUKAEMIA
     Dosage: 12 DOSES
     Route: 042
  2. DOXORUBICIN HYDROCHLORIDE. [Suspect]
     Active Substance: DOXORUBICIN HYDROCHLORIDE
     Indication: NON-HODGKIN^S LYMPHOMA
     Dosage: 12 DOSES
     Route: 042
  3. DEXRAZOXANE. [Suspect]
     Active Substance: DEXRAZOXANE
     Indication: PROPHYLAXIS
     Dosage: IMMEDIATELY PRIOR TO EACH DOXORUBICIN HYDROCHLORIDE DOSE
     Route: 042

REACTIONS (7)
  - Death [Fatal]
  - Haematotoxicity [Unknown]
  - Left ventricular dysfunction [Recovered/Resolved]
  - Nervous system disorder [Unknown]
  - Infection [Unknown]
  - Mucosal inflammation [Unknown]
  - Neoplasm malignant [Unknown]
